FAERS Safety Report 8187623-1 (Version None)
Quarter: 2012Q1

REPORT INFORMATION
  Report Type: 
  Country: None (occurrence: None)
  Receive Date: 20120302
  Receipt Date: 20120213
  Transmission Date: 20120608
  Serious: Yes (Other)
  Sender: FDA-Public Use
  Company Number: 001122694A

PATIENT
  Sex: Female

DRUGS (1)
  1. PROACTIV 90 DAY KIT (PA90) [Suspect]
     Indication: ACNE
     Dosage: TWICE DAILY
     Dates: start: 20120130, end: 20120217

REACTIONS (3)
  - HEADACHE [None]
  - SWELLING FACE [None]
  - DYSPNOEA [None]
